FAERS Safety Report 5932551-2 (Version None)
Quarter: 2008Q4

REPORT INFORMATION
  Report Type: 
  Country: None (occurrence: None)
  Receive Date: 20081023
  Receipt Date: 20081021
  Transmission Date: 20090506
  Serious: Yes (Death)
  Sender: FDA-Public Use
  Company Number: THQ2008A02054

PATIENT
  Age: 58 Year
  Sex: Female

DRUGS (5)
  1. LANSOPRAZOLE [Suspect]
     Indication: GOUTY ARTHRITIS
     Dosage: PER ORAL
     Route: 048
     Dates: start: 20070306
  2. LANSOPRAZOLE [Suspect]
     Indication: ISCHAEMIC STROKE
     Dosage: PER ORAL
     Route: 048
     Dates: start: 20070306
  3. LANSOPRAZOLE [Suspect]
     Indication: UPPER GASTROINTESTINAL HAEMORRHAGE
     Dosage: PER ORAL
     Route: 048
     Dates: start: 20070306
  4. CELECOXIB [Concomitant]
  5. CLOPIDOGREL [Concomitant]

REACTIONS (4)
  - MULTI-ORGAN FAILURE [None]
  - SEPTIC SHOCK [None]
  - STEVENS-JOHNSON SYNDROME [None]
  - TOXIC EPIDERMAL NECROLYSIS [None]
